FAERS Safety Report 22243979 (Version 2)
Quarter: 2023Q2

REPORT INFORMATION
  Report Type: Report from Study
  Country: ES (occurrence: ES)
  Receive Date: 20230424
  Receipt Date: 20230614
  Transmission Date: 20230721
  Serious: Yes (Other)
  Sender: FDA-Public Use
  Company Number: ES-TAKEDA-2023TUS040700

PATIENT
  Age: 65 Year
  Sex: Male

DRUGS (24)
  1. TEDUGLUTIDE [Suspect]
     Active Substance: TEDUGLUTIDE
     Indication: Short-bowel syndrome
     Dosage: 3.35 MILLIGRAM, QD
     Route: 042
     Dates: start: 20200224, end: 20201020
  2. TEDUGLUTIDE [Suspect]
     Active Substance: TEDUGLUTIDE
     Indication: Short-bowel syndrome
     Dosage: 3.35 MILLIGRAM, QD
     Route: 042
     Dates: start: 20200224, end: 20201020
  3. TEDUGLUTIDE [Suspect]
     Active Substance: TEDUGLUTIDE
     Indication: Short-bowel syndrome
     Dosage: 3.35 MILLIGRAM, QD
     Route: 042
     Dates: start: 20200224, end: 20201020
  4. TEDUGLUTIDE [Suspect]
     Active Substance: TEDUGLUTIDE
     Indication: Short-bowel syndrome
     Dosage: 3.35 MILLIGRAM, QD
     Route: 042
     Dates: start: 20200224, end: 20201020
  5. TEDUGLUTIDE [Suspect]
     Active Substance: TEDUGLUTIDE
     Dosage: 3.35 MILLIGRAM, 3/WEEK
     Route: 042
     Dates: start: 20201020, end: 20210203
  6. TEDUGLUTIDE [Suspect]
     Active Substance: TEDUGLUTIDE
     Dosage: 3.35 MILLIGRAM, 3/WEEK
     Route: 042
     Dates: start: 20201020, end: 20210203
  7. TEDUGLUTIDE [Suspect]
     Active Substance: TEDUGLUTIDE
     Dosage: 3.35 MILLIGRAM, 3/WEEK
     Route: 042
     Dates: start: 20201020, end: 20210203
  8. TEDUGLUTIDE [Suspect]
     Active Substance: TEDUGLUTIDE
     Dosage: 3.35 MILLIGRAM, 3/WEEK
     Route: 042
     Dates: start: 20201020, end: 20210203
  9. TEDUGLUTIDE [Suspect]
     Active Substance: TEDUGLUTIDE
     Dosage: 3.35 MILLIGRAM, 4/WEEK
     Route: 042
     Dates: start: 20210203, end: 20210217
  10. TEDUGLUTIDE [Suspect]
     Active Substance: TEDUGLUTIDE
     Dosage: 3.35 MILLIGRAM, 4/WEEK
     Route: 042
     Dates: start: 20210203, end: 20210217
  11. TEDUGLUTIDE [Suspect]
     Active Substance: TEDUGLUTIDE
     Dosage: 3.35 MILLIGRAM, 4/WEEK
     Route: 042
     Dates: start: 20210203, end: 20210217
  12. TEDUGLUTIDE [Suspect]
     Active Substance: TEDUGLUTIDE
     Dosage: 3.35 MILLIGRAM, 4/WEEK
     Route: 042
     Dates: start: 20210203, end: 20210217
  13. TEDUGLUTIDE [Suspect]
     Active Substance: TEDUGLUTIDE
     Dosage: 3.35 MILLIGRAM, 3/WEEK
     Route: 042
     Dates: start: 20210217, end: 20210721
  14. TEDUGLUTIDE [Suspect]
     Active Substance: TEDUGLUTIDE
     Dosage: 3.35 MILLIGRAM, 3/WEEK
     Route: 042
     Dates: start: 20210217, end: 20210721
  15. TEDUGLUTIDE [Suspect]
     Active Substance: TEDUGLUTIDE
     Dosage: 3.35 MILLIGRAM, 3/WEEK
     Route: 042
     Dates: start: 20210217, end: 20210721
  16. TEDUGLUTIDE [Suspect]
     Active Substance: TEDUGLUTIDE
     Dosage: 3.35 MILLIGRAM, 3/WEEK
     Route: 042
     Dates: start: 20210217, end: 20210721
  17. TEDUGLUTIDE [Suspect]
     Active Substance: TEDUGLUTIDE
     Dosage: 3.35 MILLIGRAM, 1/WEEK
     Route: 042
     Dates: start: 20210721, end: 20211224
  18. TEDUGLUTIDE [Suspect]
     Active Substance: TEDUGLUTIDE
     Dosage: 3.35 MILLIGRAM, 1/WEEK
     Route: 042
     Dates: start: 20210721, end: 20211224
  19. TEDUGLUTIDE [Suspect]
     Active Substance: TEDUGLUTIDE
     Dosage: 3.35 MILLIGRAM, 1/WEEK
     Route: 042
     Dates: start: 20210721, end: 20211224
  20. TEDUGLUTIDE [Suspect]
     Active Substance: TEDUGLUTIDE
     Dosage: 3.35 MILLIGRAM, 1/WEEK
     Route: 042
     Dates: start: 20210721, end: 20211224
  21. PREGABALIN [Concomitant]
     Active Substance: PREGABALIN
     Indication: Pain
     Dosage: 75 MILLIGRAM, QD
     Route: 048
     Dates: start: 20221019
  22. TRAMADOL [Concomitant]
     Active Substance: TRAMADOL
     Indication: Pain
     Dosage: 37.5 MILLIGRAM, BID
     Route: 048
     Dates: start: 20211103
  23. ACETAMINOPHEN [Concomitant]
     Active Substance: ACETAMINOPHEN
     Indication: Pain
     Dosage: UNK, BID
     Route: 048
     Dates: start: 20211103
  24. LORMETAZEPAM [Concomitant]
     Active Substance: LORMETAZEPAM
     Indication: Insomnia
     Dosage: 2 MILLIGRAM, QD
     Route: 048
     Dates: start: 20220921

REACTIONS (1)
  - Device related infection [Recovered/Resolved]

NARRATIVE: CASE EVENT DATE: 20221017
